FAERS Safety Report 18792912 (Version 10)
Quarter: 2024Q1

REPORT INFORMATION
  Report Type: Spontaneous
  Country: US (occurrence: US)
  Receive Date: 20210127
  Receipt Date: 20240213
  Transmission Date: 20240410
  Serious: Yes (Other)
  Sender: FDA-Public Use
  Company Number: US-PFIZER INC-2019250657

PATIENT
  Age: 36 Year
  Sex: Male

DRUGS (7)
  1. XYNTHA [Suspect]
     Active Substance: ANTIHEMOPHILIC FACTOR, HUMAN RECOMBINANT RESIDUES 743-1636 DELETED
     Indication: Haemarthrosis
     Dosage: AS NEEDED (4,000 =/- 10% UNITS PRN (AS NEEDED) EVERY 12 HOURS)
  2. XYNTHA [Suspect]
     Active Substance: ANTIHEMOPHILIC FACTOR, HUMAN RECOMBINANT RESIDUES 743-1636 DELETED
     Dosage: 3,000 +/-10% UNITS ON MONDAY, WEDNESDAY, AND FRIDAY
     Route: 042
     Dates: start: 20221014
  3. XYNTHA [Suspect]
     Active Substance: ANTIHEMOPHILIC FACTOR, HUMAN RECOMBINANT RESIDUES 743-1636 DELETED
     Dosage: 4,000 +/- 10% UNITS PRN EVERY 12 HOURS
     Route: 042
     Dates: start: 20221014
  4. XYNTHA [Suspect]
     Active Substance: ANTIHEMOPHILIC FACTOR, HUMAN RECOMBINANT RESIDUES 743-1636 DELETED
     Dosage: 2000 UNITS INJECT 2 KITS INTO THE VEIN EVERY 12 HOURS AS NEEDED PRN
     Route: 042
  5. XYNTHA [Suspect]
     Active Substance: ANTIHEMOPHILIC FACTOR, HUMAN RECOMBINANT RESIDUES 743-1636 DELETED
     Dosage: 1000 UNITS INJECT 3 KITS INTO THE VEIN EVERY MONDAY WEDNESDAY AND FRIDAY
     Route: 042
  6. XYNTHA [Suspect]
     Active Substance: ANTIHEMOPHILIC FACTOR, HUMAN RECOMBINANT RESIDUES 743-1636 DELETED
     Dosage: INJECT 3 KITS OF XYNTHA 1000 UNITS INTO VEIN EVERY MON, WED, AND FRI.
     Route: 042
  7. XYNTHA [Suspect]
     Active Substance: ANTIHEMOPHILIC FACTOR, HUMAN RECOMBINANT RESIDUES 743-1636 DELETED
     Dosage: INJECT 2 KITS,2000 UNITS(TOTAL 4000 IU)PRN EVERY 12 HR.12 KITS OF 1000 IU/PLUS 3 KITS OF 2000 IU

REACTIONS (1)
  - Haemorrhage [Unknown]
